FAERS Safety Report 5032689-0 (Version None)
Quarter: 2006Q2

REPORT INFORMATION
  Report Type: 
  Country: None (occurrence: None)
  Receive Date: 20060620
  Receipt Date: 20060620
  Transmission Date: 20061013
  Serious: Yes (Other)
  Sender: FDA-Public Use
  Company Number: None

PATIENT
  Age: 68 Year
  Sex: Male
  Weight: 88.4514 kg

DRUGS (8)
  1. LYRICA [Suspect]
     Indication: BURNING SENSATION
     Dosage: 75MG  TWICE DAILY  ORALLY
     Route: 048
     Dates: start: 20060505, end: 20060506
  2. LYRICA [Suspect]
     Indication: PAIN
     Dosage: 75MG  TWICE DAILY  ORALLY
     Route: 048
     Dates: start: 20060505, end: 20060506
  3. NORVASC [Concomitant]
  4. FLOMAX [Concomitant]
  5. ZELNOR [Concomitant]
  6. ADVAIR DISKUS 100/50 [Concomitant]
  7. COMBIVENT [Concomitant]
  8. VICODIN [Concomitant]

REACTIONS (4)
  - NAIL DISCOLOURATION [None]
  - OEDEMA PERIPHERAL [None]
  - PAIN IN EXTREMITY [None]
  - SKIN TIGHTNESS [None]
